FAERS Safety Report 8241949-1 (Version None)
Quarter: 2012Q1

REPORT INFORMATION
  Report Type: 
  Country: None (occurrence: None)
  Receive Date: 20120329
  Receipt Date: 20120320
  Transmission Date: 20120608
  Serious: Yes (Hospitalization)
  Sender: FDA-Public Use
  Company Number: US-BIOGENIDEC-2011BI018343

PATIENT
  Age: 53 Year
  Sex: Female
  Weight: 92 kg

DRUGS (22)
  1. SLIDING SCALE INSULIN [Concomitant]
  2. ZOLOFT [Concomitant]
  3. ZOVIRAX [Concomitant]
  4. PANTOPRAZOLE [Concomitant]
  5. TYSABRI [Suspect]
     Indication: MULTIPLE SCLEROSIS
     Route: 042
     Dates: start: 20070308, end: 20110414
  6. ZANAFLEX [Concomitant]
  7. LOVENOX [Concomitant]
     Indication: THROMBOSIS PROPHYLAXIS
     Dates: start: 20110701
  8. LIPITOR [Concomitant]
  9. VITAMIN TAB [Concomitant]
  10. BACLOFEN [Concomitant]
  11. LEVOTHYROXINE SODIUM [Concomitant]
  12. CEFTIN [Concomitant]
  13. NEURONTIN [Concomitant]
  14. OXYBUTYNIN [Concomitant]
  15. METFORMIN HCL [Concomitant]
  16. ZANAFLEX [Concomitant]
  17. BACLOFEN [Concomitant]
  18. XANAX [Concomitant]
     Dates: start: 20110701
  19. ASPIRIN [Concomitant]
  20. TOBRAMYCIN [Concomitant]
  21. TOVIAZ [Concomitant]
  22. NITROFURANTOIN [Concomitant]

REACTIONS (2)
  - PROGRESSIVE MULTIFOCAL LEUKOENCEPHALOPATHY [None]
  - MULTIPLE SCLEROSIS RELAPSE [None]
